FAERS Safety Report 9262392 (Version 1)
Quarter: 2013Q2

REPORT INFORMATION
  Report Type: Spontaneous
  Country: US (occurrence: None)
  Receive Date: 20130425
  Receipt Date: 20130425
  Transmission Date: 20140414
  Serious: Yes (Hospitalization)
  Sender: FDA-Public Use
  Company Number: None

PATIENT
  Age: 64 Year
  Sex: Male
  Weight: 75.1 kg

DRUGS (6)
  1. PROCARBAZINE [Suspect]
  2. RITUXIMAB [Suspect]
  3. VINCRISTINE SULFATE [Suspect]
  4. BENZAPRIL [Concomitant]
  5. DEXAMETHASONE [Concomitant]
  6. LASIX [Concomitant]

REACTIONS (8)
  - Lymphocyte count decreased [None]
  - Cardiac failure congestive [None]
  - Fluid overload [None]
  - Pulmonary embolism [None]
  - Deep vein thrombosis [None]
  - Thrombocytopenia [None]
  - White blood cell count decreased [None]
  - Performance status decreased [None]
